FAERS Safety Report 12602376 (Version 1)
Quarter: 2016Q3

REPORT INFORMATION
  Report Type: Spontaneous
  Country: US (occurrence: US)
  Receive Date: 20160728
  Receipt Date: 20160728
  Transmission Date: 20161109
  Serious: No
  Sender: FDA-Public Use
  Company Number: US-PFIZER INC-2016362485

PATIENT
  Sex: Female

DRUGS (1)
  1. LYRICA [Suspect]
     Active Substance: PREGABALIN
     Dosage: 75 MG, UNK

REACTIONS (9)
  - Somnolence [Unknown]
  - Weight increased [Unknown]
  - Dizziness [Unknown]
  - Peripheral swelling [Unknown]
  - Dyspnoea [Unknown]
  - Posture abnormal [Unknown]
  - Insomnia [Unknown]
  - Increased appetite [Unknown]
  - Blood glucose decreased [Unknown]
